FAERS Safety Report 9885980 (Version 1)
Quarter: 2013Q4

REPORT INFORMATION
  Report Type: Spontaneous
  Country: US (occurrence: None)
  Receive Date: 20131223
  Receipt Date: 20131223
  Transmission Date: 20140711
  Serious: Yes (Other)
  Sender: FDA-Public Use
  Company Number: 218071LEO

PATIENT
  Sex: Female

DRUGS (2)
  1. PICATO GEL [Suspect]
     Indication: PRECANCEROUS SKIN LESION
     Dosage: QD X3  DAYS (QD X3 DAYS),
     Route: 061
     Dates: start: 20120708
  2. HIGH BLOOD PRESSURE MEDICATION (UNSPECIFIED) (ANTIHYPERTENSIVES) [Concomitant]

REACTIONS (1)
  - Application site erythema [None]
